FAERS Safety Report 5579507-X (Version None)
Quarter: 2007Q4

REPORT INFORMATION
  Report Type: 
  Country: None (occurrence: None)
  Receive Date: 20071130
  Receipt Date: 20070702
  Transmission Date: 20080405
  Serious: No
  Sender: FDA-Public Use
  Company Number: US200707001720

PATIENT
  Age: 54 Year
  Sex: Male
  Weight: 116.1 kg

DRUGS (5)
  1. BYETTA [Suspect]
     Indication: TYPE 2 DIABETES MELLITUS
     Dosage: 5 UG, SUBCUTANEOUS ; 10 UG, 2/D, SUBCUTANEOUS ; 10 UG, DAILY (1/D), SUBCUTANEOUS
     Route: 058
     Dates: end: 20070601
  2. BYETTA [Suspect]
     Indication: TYPE 2 DIABETES MELLITUS
     Dosage: 5 UG, SUBCUTANEOUS ; 10 UG, 2/D, SUBCUTANEOUS ; 10 UG, DAILY (1/D), SUBCUTANEOUS
     Route: 058
     Dates: start: 20050101
  3. BYETTA [Suspect]
     Indication: TYPE 2 DIABETES MELLITUS
     Dosage: 5 UG, SUBCUTANEOUS ; 10 UG, 2/D, SUBCUTANEOUS ; 10 UG, DAILY (1/D), SUBCUTANEOUS
     Route: 058
     Dates: start: 20070601
  4. ACTUS                          (PIOGLITAZONE HYDROCHLORIDE) [Concomitant]
  5. GLUCOVANCE [Concomitant]

REACTIONS (6)
  - BLOOD GLUCOSE DECREASED [None]
  - BLOOD GLUCOSE INCREASED [None]
  - DECREASED APPETITE [None]
  - DRUG EFFECT DECREASED [None]
  - NAUSEA [None]
  - WEIGHT DECREASED [None]
